FAERS Safety Report 14250905 (Version 1)
Quarter: 2017Q4

REPORT INFORMATION
  Report Type: Spontaneous
  Country: US (occurrence: None)
  Receive Date: 20171205
  Receipt Date: 20171205
  Transmission Date: 20180321
  Serious: Yes (Life-Threatening, Other)
  Sender: FDA-Public Use
  Company Number: None

PATIENT
  Age: 56 Year
  Sex: Female
  Weight: 88.9 kg

DRUGS (8)
  1. GABAPENTIN. [Concomitant]
     Active Substance: GABAPENTIN
  2. CLONIDINE. [Concomitant]
     Active Substance: CLONIDINE
  3. PANTOPRAZOLE SOD DR [Concomitant]
  4. MULTI-VITAMIN [Concomitant]
     Active Substance: .ALPHA.-TOCOPHEROL ACETATE, DL-\ASCORBIC ACID\CYANOCOBALAMIN\FLUORIDE ION\FOLIC ACID\NIACIN\PYRIDOXINE\RIBOFLAVIN\THIAMINE\VITAMIN A\VITAMIN D
  5. GENERIC BACTRIM (SULFAMETHOXAZOLE-TRIMETHOPRIM) 800/160 [Suspect]
     Active Substance: SULFAMETHOXAZOLE\TRIMETHOPRIM
     Indication: CELLULITIS
     Dosage: 800/160 MG 1 PILL TWICE DAILY BY MOUTH
     Route: 048
     Dates: start: 20171019, end: 20171024
  6. IRON [Concomitant]
     Active Substance: IRON
  7. CETIRIZINE [Concomitant]
     Active Substance: CETIRIZINE HYDROCHLORIDE
  8. MSM [Concomitant]
     Active Substance: DIMETHYL SULFONE

REACTIONS (7)
  - Dyspnoea [None]
  - Hypertension [None]
  - Stevens-Johnson syndrome [None]
  - Rash vesicular [None]
  - Chest pain [None]
  - Burning sensation [None]
  - Dizziness [None]

NARRATIVE: CASE EVENT DATE: 20171021
